FAERS Safety Report 6765862-1 (Version None)
Quarter: 2010Q2

REPORT INFORMATION
  Report Type: 
  Country: None (occurrence: None)
  Receive Date: 20100611
  Receipt Date: 20031112
  Transmission Date: 20101027
  Serious: Yes (Other)
  Sender: FDA-Public Use
  Company Number: PHHY2003CO02425

PATIENT
  Sex: Female

DRUGS (1)
  1. STARLIX [Suspect]
     Dosage: UNK
     Route: 048

REACTIONS (1)
  - PARKINSON'S DISEASE [None]
